FAERS Safety Report 4370061-7 (Version None)
Quarter: 2004Q2

REPORT INFORMATION
  Report Type: 
  Country: None (occurrence: None)
  Receive Date: 20040527
  Receipt Date: 20040514
  Transmission Date: 20050107
  Serious: Yes (Hospitalization)
  Sender: FDA-Public Use
  Company Number: TR-JNJFOC-20040503075

PATIENT
  Age: 60 Year
  Sex: Female
  Weight: 70 kg

DRUGS (7)
  1. REMICADE [Suspect]
     Indication: BEHCET'S SYNDROME
     Dosage: 400 MG, INTRAVENOUS
     Route: 042
  2. REMICADE [Suspect]
     Indication: PYODERMA GANGRENOSUM
     Dosage: 400 MG, INTRAVENOUS
     Route: 042
  3. SIMETICONE (DIMETICONE, ACTIVATED) [Concomitant]
  4. PREDNOL (METHYLPREDNISOLONE) [Concomitant]
  5. ISONIAZID [Concomitant]
  6. MAGNESIUM DIASPORAL (MAGNESIUM CITRATE) [Concomitant]
  7. CALCIUM + VITAMIN D (CALCIUM) [Concomitant]

REACTIONS (11)
  - ASTHENIA [None]
  - BLOOD GLUCOSE INCREASED [None]
  - BLOOD SODIUM DECREASED [None]
  - CHEST PAIN [None]
  - FATIGUE [None]
  - HEADACHE [None]
  - HYPOTENSION [None]
  - INFUSION RELATED REACTION [None]
  - LOSS OF CONSCIOUSNESS [None]
  - PALPITATIONS [None]
  - SYNCOPE [None]
